FAERS Safety Report 13665885 (Version 1)
Quarter: 2017Q2

REPORT INFORMATION
  Report Type: Spontaneous
  Country: FR (occurrence: FR)
  Receive Date: 20170619
  Receipt Date: 20170619
  Transmission Date: 20170830
  Serious: Yes (Hospitalization)
  Sender: FDA-Public Use
  Company Number: FR-SA-2017SA106978

PATIENT
  Age: 69 Year
  Sex: Male

DRUGS (16)
  1. CABOMETYX [Suspect]
     Active Substance: CABOZANTINIB S-MALATE
     Indication: RENAL CANCER
     Route: 048
     Dates: start: 20170420
  2. OXYCONTIN [Concomitant]
     Active Substance: OXYCODONE HYDROCHLORIDE
  3. XATRAL [Concomitant]
     Active Substance: ALFUZOSIN
  4. RAMIPRIL. [Concomitant]
     Active Substance: RAMIPRIL
  5. LOVENOX [Suspect]
     Active Substance: ENOXAPARIN SODIUM
     Route: 058
  6. PRIMPERAN [Concomitant]
     Active Substance: METOCLOPRAMIDE HYDROCHLORIDE
  7. LEVOTHYROX [Concomitant]
     Active Substance: LEVOTHYROXINE
  8. KARDEGIC [Suspect]
     Active Substance: ASPIRIN LYSINE
     Route: 048
  9. OXYNORMORO [Concomitant]
     Active Substance: OXYCODONE
  10. VERSATIS [Concomitant]
     Active Substance: LIDOCAINE
     Dosage: DOSAGE FORM: MEDICATED PLASTER
     Route: 065
  11. LANTUS [Concomitant]
     Active Substance: INSULIN GLARGINE
  12. TRANSIPEG [Concomitant]
     Active Substance: POLYETHYLENE GLYCOL 3350
  13. CORTANCYL [Concomitant]
     Active Substance: PREDNISONE
  14. PREGABALIN. [Concomitant]
     Active Substance: PREGABALIN
  15. NOVORAPID [Concomitant]
     Active Substance: INSULIN ASPART
  16. AMLODIPINE [Concomitant]
     Active Substance: AMLODIPINE BESYLATE

REACTIONS (4)
  - Lower gastrointestinal perforation [Not Recovered/Not Resolved]
  - Urinary retention [Not Recovered/Not Resolved]
  - Sepsis [Not Recovered/Not Resolved]
  - Peritonitis bacterial [Not Recovered/Not Resolved]

NARRATIVE: CASE EVENT DATE: 20170521
